FAERS Safety Report 6010114-0 (Version None)
Quarter: 2008Q4

REPORT INFORMATION
  Report Type: 
  Country: None (occurrence: None)
  Receive Date: 20081217
  Receipt Date: 20081217
  Transmission Date: 20090506
  Serious: Yes (Hospitalization)
  Sender: FDA-Public Use
  Company Number: None

PATIENT
  Sex: Male

DRUGS (2)
  1. FAZACLO ODT [Suspect]
     Indication: SCHIZOPHRENIA
     Dosage: 300 MG QPM PO
     Route: 048
     Dates: start: 20070227
  2. FLUPHENAZINE DECANOATE [Suspect]
     Indication: SCHIZOPHRENIA
     Dosage: 37.5 MG Q 2 WKS IM
     Route: 030
     Dates: start: 20080620

REACTIONS (3)
  - COLONIC PSEUDO-OBSTRUCTION [None]
  - FAECALOMA [None]
  - ILEUS [None]
